FAERS Safety Report 20863641 (Version 1)
Quarter: 2022Q2

REPORT INFORMATION
  Report Type: Spontaneous
  Country: FR (occurrence: FR)
  Receive Date: 20220523
  Receipt Date: 20220523
  Transmission Date: 20220720
  Serious: Yes (Hospitalization, Other)
  Sender: FDA-Public Use
  Company Number: FR-GILEAD-2022-0582513

PATIENT
  Sex: Female

DRUGS (3)
  1. TRODELVY [Suspect]
     Active Substance: SACITUZUMAB GOVITECAN-HZIY
     Indication: Product used for unknown indication
     Dosage: C1D1
     Route: 065
  2. TRODELVY [Suspect]
     Active Substance: SACITUZUMAB GOVITECAN-HZIY
     Dosage: C1D8 UNK DOSE REDUCED
     Route: 065
  3. TRODELVY [Suspect]
     Active Substance: SACITUZUMAB GOVITECAN-HZIY
     Dosage: UNK
     Route: 065

REACTIONS (4)
  - Hepatic cytolysis [Unknown]
  - Disease progression [Unknown]
  - Diarrhoea [Unknown]
  - Asthenia [Unknown]
